FAERS Safety Report 11714533 (Version 1)
Quarter: 2015Q4

REPORT INFORMATION
  Report Type: Spontaneous
  Country: EC (occurrence: EC)
  Receive Date: 20151109
  Receipt Date: 20151109
  Transmission Date: 20160304
  Serious: Yes (Hospitalization)
  Sender: FDA-Public Use
  Company Number: EC-CLINIGEN GROUP PLC/ CLINIGEN HEALTHCARE LTD-EC-CLGN-15-00003

PATIENT
  Age: 31 Year
  Sex: Female

DRUGS (1)
  1. ETHYOL [Suspect]
     Active Substance: AMIFOSTINE
     Indication: RADIATION INJURY
     Route: 058
     Dates: start: 20150205, end: 20150218

REACTIONS (6)
  - Stomatitis [Recovered/Resolved]
  - Pain [Recovered/Resolved]
  - Product use issue [Recovered/Resolved]
  - Nausea [Recovered/Resolved]
  - Pyrexia [Recovered/Resolved]
  - Dermatitis allergic [Recovered/Resolved]

NARRATIVE: CASE EVENT DATE: 20150205
